FAERS Safety Report 4647185-X (Version None)
Quarter: 2005Q2

REPORT INFORMATION
  Report Type: 
  Country: None (occurrence: None)
  Receive Date: 20050426
  Receipt Date: 20050414
  Transmission Date: 20051028
  Serious: Yes (Other)
  Sender: FDA-Public Use
  Company Number: HQWYE023714APR05

PATIENT
  Age: 70 Year
  Sex: Male

DRUGS (1)
  1. CORDARONE [Suspect]
     Dosage: 600 MG 1X PER 1 DAY ORAL
     Route: 048

REACTIONS (5)
  - COORDINATION ABNORMAL [None]
  - CORNEAL DISORDER [None]
  - HALLUCINATION [None]
  - HEADACHE [None]
  - PHOTOSENSITIVITY REACTION [None]
